FAERS Safety Report 12376915 (Version 1)
Quarter: 2016Q2

REPORT INFORMATION
  Report Type: Report from Study
  Country: US (occurrence: US)
  Receive Date: 20160517
  Receipt Date: 20160517
  Transmission Date: 20160815
  Serious: No
  Sender: FDA-Public Use
  Company Number: US-MALLINCKRODT-T201503578

PATIENT
  Age: 44 Year
  Sex: Female

DRUGS (1)
  1. REPOSITORY CORTICOTROPIN INJECTION [Suspect]
     Active Substance: CORTICOTROPIN
     Indication: MULTIPLE SCLEROSIS RELAPSE
     Dosage: UNKNOWN DOSE SCHEDULED FOR 5 DAYS
     Route: 065
     Dates: start: 201408

REACTIONS (6)
  - Urinary tract infection [Unknown]
  - Myalgia [Unknown]
  - Joint swelling [Recovered/Resolved]
  - Insomnia [Unknown]
  - Fall [Unknown]
  - Tooth fracture [Unknown]

NARRATIVE: CASE EVENT DATE: 201408
